FAERS Safety Report 16055055 (Version 5)
Quarter: 2019Q2

REPORT INFORMATION
  Report Type: Spontaneous
  Country: PL (occurrence: PL)
  Receive Date: 20190310
  Receipt Date: 20190415
  Transmission Date: 20190711
  Serious: Yes (Hospitalization, Other)
  Sender: FDA-Public Use
  Company Number: PL-BEH-2019100032

PATIENT
  Age: 2 Year
  Sex: Female
  Weight: 13 kg

DRUGS (20)
  1. HIZENTRA [Suspect]
     Active Substance: HUMAN IMMUNOGLOBULIN G
     Dosage: 2 G, TOT
     Route: 058
     Dates: start: 20190104, end: 20190104
  2. HIZENTRA [Suspect]
     Active Substance: HUMAN IMMUNOGLOBULIN G
     Dosage: 2 G, TOT
     Route: 058
     Dates: start: 20181015, end: 20181015
  3. HIZENTRA [Suspect]
     Active Substance: HUMAN IMMUNOGLOBULIN G
     Dosage: 2 G, QOW
     Route: 058
     Dates: start: 20180612, end: 20190205
  4. HIZENTRA [Suspect]
     Active Substance: HUMAN IMMUNOGLOBULIN G
     Dosage: 2 G, TOT
     Route: 058
     Dates: start: 20181031, end: 20181031
  5. HIZENTRA [Suspect]
     Active Substance: HUMAN IMMUNOGLOBULIN G
     Dosage: 2 G, TOT
     Route: 058
     Dates: start: 20180320, end: 20180320
  6. HIZENTRA [Suspect]
     Active Substance: HUMAN IMMUNOGLOBULIN G
     Dosage: 2 G, TOT
     Route: 058
     Dates: start: 20180417, end: 20180417
  7. HIZENTRA [Suspect]
     Active Substance: HUMAN IMMUNOGLOBULIN G
     Dosage: 2 G, TOT
     Route: 058
     Dates: start: 20181215, end: 20181215
  8. HIZENTRA [Suspect]
     Active Substance: HUMAN IMMUNOGLOBULIN G
     Dosage: 2 G, TOT
     Route: 058
     Dates: start: 20180711, end: 20180711
  9. HIZENTRA [Suspect]
     Active Substance: HUMAN IMMUNOGLOBULIN G
     Indication: IMMUNODEFICIENCY COMMON VARIABLE
     Dosage: 2.0 G, QOW
     Route: 058
     Dates: start: 20190121, end: 20190121
  10. HIZENTRA [Suspect]
     Active Substance: HUMAN IMMUNOGLOBULIN G
     Dosage: 2 G, TOT
     Route: 058
     Dates: start: 20180403, end: 20180403
  11. HIZENTRA [Suspect]
     Active Substance: HUMAN IMMUNOGLOBULIN G
     Dosage: 2 G, TOT
     Route: 058
     Dates: start: 20180430, end: 20180430
  12. HIZENTRA [Suspect]
     Active Substance: HUMAN IMMUNOGLOBULIN G
     Dosage: 2 G, TOT
     Route: 058
     Dates: start: 20180515, end: 20180515
  13. HIZENTRA [Suspect]
     Active Substance: HUMAN IMMUNOGLOBULIN G
     Dosage: 2 G, TOT
     Route: 058
     Dates: start: 20180927, end: 20180927
  14. HIZENTRA [Suspect]
     Active Substance: HUMAN IMMUNOGLOBULIN G
     Dosage: 2 G, TOT
     Route: 058
     Dates: start: 20181114, end: 20181114
  15. HIZENTRA [Suspect]
     Active Substance: HUMAN IMMUNOGLOBULIN G
     Dosage: 2 G, TOT
     Route: 058
     Dates: start: 20190120, end: 20190120
  16. HIZENTRA [Suspect]
     Active Substance: HUMAN IMMUNOGLOBULIN G
     Indication: HYPOGAMMAGLOBULINAEMIA
     Dosage: 2.0 G, QOW
     Route: 058
     Dates: start: 20190204, end: 20190204
  17. HIZENTRA [Suspect]
     Active Substance: HUMAN IMMUNOGLOBULIN G
     Dosage: 2 G, TOT
     Route: 058
     Dates: start: 20180530, end: 20180530
  18. HIZENTRA [Suspect]
     Active Substance: HUMAN IMMUNOGLOBULIN G
     Dosage: 2 G, TOT
     Route: 058
     Dates: start: 20180624, end: 20180624
  19. HIZENTRA [Suspect]
     Active Substance: HUMAN IMMUNOGLOBULIN G
     Dosage: 2 G, TOT
     Route: 058
     Dates: start: 20181201, end: 20181201
  20. HIZENTRA [Suspect]
     Active Substance: HUMAN IMMUNOGLOBULIN G
     Dosage: 2 G, TOT
     Route: 058
     Dates: start: 20190205, end: 20190205

REACTIONS (3)
  - Alpha 1 foetoprotein increased [Not Recovered/Not Resolved]
  - Hepatic enzyme increased [Not Recovered/Not Resolved]
  - Suspected transmission of an infectious agent via product [Unknown]

NARRATIVE: CASE EVENT DATE: 201902
